FAERS Safety Report 7238235-5 (Version None)
Quarter: 2011Q1

REPORT INFORMATION
  Report Type: 
  Country: None (occurrence: None)
  Receive Date: 20110121
  Receipt Date: 20110117
  Transmission Date: 20110831
  Serious: Yes (Hospitalization)
  Sender: FDA-Public Use
  Company Number: US-PFIZER INC-2011011879

PATIENT
  Sex: Female

DRUGS (2)
  1. ARGATROBAN [Suspect]
     Dosage: 0.03MCG/KG/MIN
     Route: 042
     Dates: start: 20101217, end: 20110116
  2. WARFARIN SODIUM [Suspect]

REACTIONS (2)
  - ACTIVATED PARTIAL THROMBOPLASTIN TIME PROLONGED [None]
  - INTERNATIONAL NORMALISED RATIO INCREASED [None]
